FAERS Safety Report 5241131-6 (Version None)
Quarter: 2007Q1

REPORT INFORMATION
  Report Type: 
  Country: None (occurrence: None)
  Receive Date: 20070215
  Receipt Date: 20070215
  Transmission Date: 20070707
  Serious: No
  Sender: FDA-Public Use
  Company Number: None

PATIENT
  Age: 14 Year
  Sex: Male
  Weight: 56.246 kg

DRUGS (2)
  1. DAYTRANA [Suspect]
     Indication: DRUG THERAPY
     Dosage: 10 MG
     Dates: start: 20070101, end: 20070201
  2. DAYTRANA [Suspect]

REACTIONS (2)
  - DEVICE FAILURE [None]
  - PHARMACEUTICAL PRODUCT COMPLAINT [None]
